FAERS Safety Report 6295169-0 (Version None)
Quarter: 2009Q3

REPORT INFORMATION
  Report Type: 
  Country: None (occurrence: None)
  Receive Date: 20090803
  Receipt Date: 20090721
  Transmission Date: 20100115
  Serious: Yes (Hospitalization, Disabling)
  Sender: FDA-Public Use
  Company Number: CY-AVENTIS-200914974GDDC

PATIENT
  Age: 56 Year
  Sex: Male

DRUGS (4)
  1. ARAVA [Suspect]
     Dosage: DOSE: UNK
     Route: 048
  2. CORTISONE [Concomitant]
  3. MICARDIS [Concomitant]
     Route: 048
  4. CALCIUM [Concomitant]
     Dosage: DOSE: UNK

REACTIONS (1)
  - ANGLE CLOSURE GLAUCOMA [None]
